FAERS Safety Report 21868211 (Version 7)
Quarter: 2024Q2

REPORT INFORMATION
  Report Type: Report from Study
  Country: US (occurrence: US)
  Receive Date: 20230116
  Receipt Date: 20240530
  Transmission Date: 20240716
  Serious: Yes (Hospitalization, Other)
  Sender: FDA-Public Use
  Company Number: US-ABBVIE-4270864

PATIENT
  Age: 78 Year
  Sex: Female

DRUGS (5)
  1. HUMIRA [Suspect]
     Active Substance: ADALIMUMAB
     Indication: Rheumatoid arthritis
     Dosage: FORM STRENGTH: 40 MILLIGRAM, LAST ADMIN DATE: APR 2022
     Route: 058
     Dates: start: 20220412
  2. HUMIRA [Suspect]
     Active Substance: ADALIMUMAB
     Dosage: FORM STRENGTH: 40 MILLIGRAM, FIRST ADMIN DATE AND LAST ADMIN DATE: 2022
     Route: 058
  3. HUMIRA [Suspect]
     Active Substance: ADALIMUMAB
     Dosage: FORM STRENGTH: 40 MILLIGRAM, CITRATE FREE
     Route: 058
  4. HUMIRA [Suspect]
     Active Substance: ADALIMUMAB
     Dosage: LAST ADMIN DATE: APR 2022, FORM STRENGTH: 40 MILLIGRAM
     Route: 058
     Dates: start: 20220408
  5. HUMIRA [Suspect]
     Active Substance: ADALIMUMAB
     Route: 058

REACTIONS (14)
  - Hospitalisation [Unknown]
  - Fall [Recovered/Resolved]
  - Pain in extremity [Not Recovered/Not Resolved]
  - Fall [Recovered/Resolved]
  - Upper limb fracture [Recovered/Resolved]
  - Rib fracture [Not Recovered/Not Resolved]
  - Rib fracture [Recovered/Resolved]
  - Arthralgia [Recovering/Resolving]
  - Pain [Not Recovered/Not Resolved]
  - Fall [Unknown]
  - Spinal fracture [Not Recovered/Not Resolved]
  - Gait disturbance [Unknown]
  - Restlessness [Unknown]
  - Sitting disability [Unknown]

NARRATIVE: CASE EVENT DATE: 20221128
